FAERS Safety Report 8203651-1 (Version None)
Quarter: 2012Q1

REPORT INFORMATION
  Report Type: 
  Country: None (occurrence: None)
  Receive Date: 20120308
  Receipt Date: 20120227
  Transmission Date: 20120608
  Serious: Yes (Death, Life-Threatening, Hospitalization)
  Sender: FDA-Public Use
  Company Number: 2012ST000214

PATIENT
  Age: 74 Year
  Sex: Male
  Weight: 81.1939 kg

DRUGS (19)
  1. MATULANE [Suspect]
     Indication: HODGKIN'S DISEASE NODULAR SCLEROSIS STAGE UNSPECIFIED
     Dosage: 200 MG; QD; PO
     Route: 048
     Dates: start: 20120202, end: 20120215
  2. CYTOXAN [Suspect]
     Indication: HODGKIN'S DISEASE NODULAR SCLEROSIS STAGE UNSPECIFIED
     Dosage: 1.186 MG;QW; IV
     Route: 042
     Dates: start: 20120209, end: 20120216
  3. LISINOPRIL [Suspect]
     Indication: CARDIAC DISORDER
     Dates: end: 20120222
  4. COREG [Suspect]
     Indication: CARDIAC DISORDER
     Dates: end: 20120222
  5. KLOR-CON [Concomitant]
  6. DOXORUBICIN HCL [Concomitant]
  7. CENTRUM SILVER   /01292501/ [Concomitant]
  8. TAMSULOSIN HCL [Concomitant]
  9. PREDNISONE TAB [Suspect]
     Indication: HODGKIN'S DISEASE NODULAR SCLEROSIS STAGE UNSPECIFIED
     Dosage: 80 MG; QD; PO
     Route: 048
     Dates: start: 20120202, end: 20120215
  10. VINBLASTINE SULFATE [Suspect]
     Indication: HODGKIN'S DISEASE NODULAR SCLEROSIS STAGE UNSPECIFIED
     Dosage: 12 MG;QW; IV
     Route: 042
     Dates: start: 20120209, end: 20120216
  11. FOLIC ACID [Concomitant]
  12. LIDOCAINE [Concomitant]
  13. LASIX [Suspect]
     Indication: CARDIAC DISORDER
     Dates: end: 20120222
  14. SPIRONOLACTONE [Suspect]
     Indication: CARDIAC DISORDER
     Dates: end: 20120222
  15. ZOFRAN [Concomitant]
  16. LEVOFLOXACIN [Concomitant]
  17. PREVACID [Concomitant]
  18. BLEOMYCIN SULFATE [Concomitant]
  19. DACARBAZINE [Concomitant]

REACTIONS (12)
  - ANAEMIA [None]
  - SHOCK [None]
  - DIARRHOEA [None]
  - CONFUSIONAL STATE [None]
  - CARDIAC FAILURE [None]
  - ATRIAL FIBRILLATION [None]
  - NEUTROPENIC SEPSIS [None]
  - CONDITION AGGRAVATED [None]
  - EXCORIATION [None]
  - MENTAL STATUS CHANGES [None]
  - FALL [None]
  - CARDIAC ARREST [None]
